FAERS Safety Report 5408695-0 (Version None)
Quarter: 2007Q3

REPORT INFORMATION
  Report Type: 
  Country: None (occurrence: None)
  Receive Date: 20070808
  Receipt Date: 20070802
  Transmission Date: 20080115
  Serious: Yes (Other)
  Sender: FDA-Public Use
  Company Number: A0667912A

PATIENT
  Age: 50 Year
  Sex: Female

DRUGS (4)
  1. LAMICTAL [Suspect]
     Indication: COMPLEX PARTIAL SEIZURES
     Dosage: 100MG TWICE PER DAY
     Route: 048
     Dates: start: 20010601
  2. HORMONE REPLACEMENT [Concomitant]
  3. HYDROCHLOROTHIAZIDE [Concomitant]
  4. THEOPHYLLINE [Concomitant]

REACTIONS (5)
  - CONVULSION [None]
  - DRUG INEFFECTIVE [None]
  - METRORRHAGIA [None]
  - PHARMACEUTICAL PRODUCT COMPLAINT [None]
  - WRONG TECHNIQUE IN DRUG USAGE PROCESS [None]
